FAERS Safety Report 4640759-1 (Version None)
Quarter: 2005Q2

REPORT INFORMATION
  Report Type: 
  Country: None (occurrence: None)
  Receive Date: 20050328
  Receipt Date: 20050217
  Transmission Date: 20051028
  Serious: No
  Sender: FDA-Public Use
  Company Number: US-JNJFOC-20050205525

PATIENT
  Age: 64 Year
  Sex: Female

DRUGS (3)
  1. ERTACZO (SERTACONAZOLE NITRATE) CREAM [Suspect]
     Indication: TINEA PEDIS
     Dosage: TOPICAL
     Route: 061
     Dates: start: 20050208
  2. BEXTRA [Concomitant]
  3. FOSAMAX [Concomitant]

REACTIONS (2)
  - BURNING SENSATION [None]
  - ERYTHEMA [None]
